FAERS Safety Report 6486558-X (Version None)
Quarter: 2009Q4

REPORT INFORMATION
  Report Type: 
  Country: None (occurrence: None)
  Receive Date: 20091210
  Receipt Date: 20091207
  Transmission Date: 20100525
  Serious: Yes (Other)
  Sender: FDA-Public Use
  Company Number: FR-BRISTOL-MYERS SQUIBB COMPANY-14884308

PATIENT
  Age: 35 Year
  Sex: Female

DRUGS (4)
  1. DIDANOSINE [Suspect]
     Indication: ANTIRETROVIRAL THERAPY
  2. ZIDOVUDINE [Suspect]
     Indication: ANTIRETROVIRAL THERAPY
     Dates: start: 20040401
  3. LAMIVUDINE [Suspect]
     Indication: ANTIRETROVIRAL THERAPY
  4. NEVIRAPINE [Suspect]
     Indication: ANTIRETROVIRAL THERAPY

REACTIONS (1)
  - CUTANEOUS LUPUS ERYTHEMATOSUS [None]
